FAERS Safety Report 16126617 (Version 2)
Quarter: 2019Q2

REPORT INFORMATION
  Report Type: Spontaneous
  Country: DE (occurrence: DE)
  Receive Date: 20190328
  Receipt Date: 20190621
  Transmission Date: 20190711
  Serious: Yes (Other)
  Sender: FDA-Public Use
  Company Number: DE-TEVA-2019-DE-1028027

PATIENT
  Age: 85 Year
  Sex: Female

DRUGS (6)
  1. RAMILICH 1,25 MG TABLETTEN [Interacting]
     Active Substance: RAMIPRIL
     Dosage: MAH ZENTIVA
     Route: 048
     Dates: start: 201811
  2. ZOPICLON ABZ 3,75 MG  FILMTABLETTEN [Concomitant]
  3. ASS-RATIOPHARM 100 MG MAGENSAFTRESISTENTE TABLETTEN [Concomitant]
     Dosage: 100 MILLIGRAM DAILY;
     Route: 048
  4. ATORVASTATIN-RATIOPHARM 40 MG FILMTABLETTEN [Suspect]
     Active Substance: ATORVASTATIN CALCIUM
     Indication: MYOCARDIAL INFARCTION
     Dosage: 40 MILLIGRAM DAILY;
     Route: 048
     Dates: start: 201811, end: 20190320
  5. BRILIQUE [Concomitant]
     Active Substance: TICAGRELOR
     Dosage: 120 MILLIGRAM DAILY;
  6. MIRTAZAPIN AL 15 MG TABLETTEN [Suspect]
     Active Substance: MIRTAZAPINE
     Route: 048
     Dates: end: 20190320

REACTIONS (4)
  - Aspartate aminotransferase increased [Recovered/Resolved]
  - Alanine aminotransferase increased [Recovered/Resolved]
  - Drug interaction [Unknown]
  - Gamma-glutamyltransferase increased [Recovered/Resolved]

NARRATIVE: CASE EVENT DATE: 20190314
